FAERS Safety Report 11797847 (Version 3)
Quarter: 2016Q2

REPORT INFORMATION
  Report Type: Report from Study
  Country: CA (occurrence: CA)
  Receive Date: 20151203
  Receipt Date: 20160510
  Transmission Date: 20160815
  Serious: Yes (Death, Other)
  Sender: FDA-Public Use
  Company Number: CA-INCYTE CORPORATION-2015IN001939

PATIENT
  Age: 63 Year
  Sex: Male

DRUGS (10)
  1. JAKAFI [Suspect]
     Active Substance: RUXOLITINIB
     Dosage: 10 MG, BID
     Route: 048
  2. ALLOPURINOL. [Concomitant]
     Active Substance: ALLOPURINOL
     Indication: PRODUCT USED FOR UNKNOWN INDICATION
     Route: 065
  3. ALLOPURINOL. [Concomitant]
     Active Substance: ALLOPURINOL
     Route: 065
  4. MIRTAZAPINE. [Concomitant]
     Active Substance: MIRTAZAPINE
     Route: 065
  5. ASA [Concomitant]
     Active Substance: ASPIRIN
     Indication: PRODUCT USED FOR UNKNOWN INDICATION
     Dosage: 80 MG, UNK
     Route: 065
  6. JAKAFI [Suspect]
     Active Substance: RUXOLITINIB
     Indication: MYELOFIBROSIS
     Dosage: 15 MG, BID
     Route: 048
     Dates: start: 20150415
  7. JAKAFI [Suspect]
     Active Substance: RUXOLITINIB
     Dosage: 5 MG, BID
     Route: 048
     Dates: end: 201512
  8. MIRTAZAPINE. [Concomitant]
     Active Substance: MIRTAZAPINE
     Indication: PRODUCT USED FOR UNKNOWN INDICATION
     Route: 065
  9. BISOPROLOL [Concomitant]
     Active Substance: BISOPROLOL
     Indication: PRODUCT USED FOR UNKNOWN INDICATION
     Route: 065
  10. BISOPROLOL [Concomitant]
     Active Substance: BISOPROLOL
     Route: 065

REACTIONS (19)
  - Fatigue [Unknown]
  - Insomnia [Recovered/Resolved]
  - Muscle spasms [Unknown]
  - Platelet count decreased [Recovered/Resolved]
  - Red blood cell count decreased [Unknown]
  - Haemoglobin decreased [Recovering/Resolving]
  - Acute leukaemia [Unknown]
  - Hypoaesthesia [Unknown]
  - Tremor [Recovered/Resolved]
  - Night sweats [Recovered/Resolved]
  - White blood cell count decreased [Unknown]
  - Restless legs syndrome [Unknown]
  - Pain in extremity [Recovered/Resolved]
  - Dyspnoea [Unknown]
  - Dysphonia [Unknown]
  - Death [Fatal]
  - Pyrexia [Unknown]
  - Pain in extremity [Unknown]
  - Chills [Unknown]

NARRATIVE: CASE EVENT DATE: 20150430
